FAERS Safety Report 12791442 (Version 2)
Quarter: 2016Q4

REPORT INFORMATION
  Report Type: Report from Study
  Country: BR (occurrence: BR)
  Receive Date: 20160929
  Receipt Date: 20161027
  Transmission Date: 20170207
  Serious: Yes (Death, Hospitalization)
  Sender: FDA-Public Use
  Company Number: PHHY2016BR133290

PATIENT
  Sex: Female

DRUGS (2)
  1. EXELON PATCH [Suspect]
     Active Substance: RIVASTIGMINE
     Indication: ASTHENIA
  2. EXELON PATCH [Suspect]
     Active Substance: RIVASTIGMINE
     Indication: MEMORY IMPAIRMENT
     Dosage: 4.6 MG QD, PATCH 5 (CM2)
     Route: 062

REACTIONS (6)
  - Malaise [Unknown]
  - Product use issue [Unknown]
  - Necrosis [Unknown]
  - Swelling [Unknown]
  - General physical health deterioration [Not Recovered/Not Resolved]
  - Death [Fatal]
